FAERS Safety Report 8406109-X (Version None)
Quarter: 2012Q2

REPORT INFORMATION
  Report Type: 
  Country: None (occurrence: None)
  Receive Date: 20120604
  Receipt Date: 20120530
  Transmission Date: 20120825
  Serious: Yes (Hospitalization)
  Sender: FDA-Public Use
  Company Number: IT-SANOFI-AVENTIS-2012SA032492

PATIENT
  Age: 57 Year
  Sex: Female

DRUGS (7)
  1. LANTUS [Suspect]
     Route: 058
  2. HUMALOG [Suspect]
     Route: 058
  3. HUMALOG [Suspect]
     Indication: DIABETES MELLITUS
     Route: 058
     Dates: start: 20090429, end: 20120429
  4. OLMESARTAN MEDOXOMIL/HYDROCHLOROTHIAZIDE [Concomitant]
     Route: 048
     Dates: start: 20100429, end: 20120429
  5. ZOPRANOL [Concomitant]
     Route: 048
  6. LANTUS [Suspect]
     Indication: DIABETES MELLITUS
     Route: 058
     Dates: start: 20090429, end: 20120429
  7. NEBIVOLOL HCL [Concomitant]

REACTIONS (2)
  - HYPOKALAEMIA [None]
  - HYPOGLYCAEMIA [None]
